FAERS Safety Report 5156940-1 (Version None)
Quarter: 2006Q4

REPORT INFORMATION
  Report Type: 
  Country: None (occurrence: None)
  Receive Date: 20061124
  Receipt Date: 20050623
  Transmission Date: 20070319
  Serious: Yes (Hospitalization, Disabling)
  Sender: FDA-Public Use
  Company Number: US-ROCHE-408714

PATIENT
  Age: 31 Year
  Sex: Male
  Weight: 83.9 kg

DRUGS (2)
  1. ACCUTANE [Suspect]
     Indication: ACNE
     Dosage: FORMULATION STATED AS 20 MG AND 40 MG CAPSULES.
     Route: 048
     Dates: start: 19950320, end: 19950708
  2. ACCUTANE [Suspect]
     Dosage: FORMULATION STATED AS 20 MG AND 40 MG CAPSULES.
     Route: 048
     Dates: start: 19991129, end: 20000731

REACTIONS (17)
  - ANAL FISSURE [None]
  - ANHEDONIA [None]
  - ANXIETY [None]
  - ARTHRALGIA [None]
  - BLOOD CHOLESTEROL INCREASED [None]
  - BLOOD PRESSURE INCREASED [None]
  - COLITIS [None]
  - DEPRESSION [None]
  - FRACTURE [None]
  - GASTROINTESTINAL DISORDER [None]
  - INFLAMMATORY BOWEL DISEASE [None]
  - INTESTINAL HAEMORRHAGE [None]
  - IRRITABLE BOWEL SYNDROME [None]
  - PRURITUS [None]
  - RECTAL HAEMORRHAGE [None]
  - SUICIDAL IDEATION [None]
  - VISION BLURRED [None]
